FAERS Safety Report 5901012-9 (Version None)
Quarter: 2008Q3

REPORT INFORMATION
  Report Type: 
  Country: None (occurrence: None)
  Receive Date: 20080924
  Receipt Date: 20080918
  Transmission Date: 20090109
  Serious: Yes (Life-Threatening)
  Sender: FDA-Public Use
  Company Number: 2008-183856-NL

PATIENT
  Age: 24 Month
  Sex: Male

DRUGS (6)
  1. VECURONIUM BROMIDE [Suspect]
     Indication: LARYNGEAL STENOSIS
     Dosage: INTRAVENOUS (NOS)
     Route: 042
     Dates: start: 20080819, end: 20080819
  2. CLONIDINE [Suspect]
     Indication: SEDATION
     Dosage: INTRAVENOUS (NOS)
     Route: 042
     Dates: start: 20080818, end: 20080819
  3. BENZYLPENICILLIN [Concomitant]
  4. CHLORAL HYDRATE [Concomitant]
  5. FUROSEMIDE [Concomitant]
  6. OMEPRAZOLE [Concomitant]

REACTIONS (3)
  - BRADYCARDIA [None]
  - CARDIAC ARREST [None]
  - HYPOXIA [None]
